FAERS Safety Report 13938508 (Version 5)
Quarter: 2017Q4

REPORT INFORMATION
  Report Type: Report from Study
  Country: US (occurrence: US)
  Receive Date: 20170905
  Receipt Date: 20171012
  Transmission Date: 20180320
  Serious: Yes (Other)
  Sender: FDA-Public Use
  Company Number: US-TEVA-803358USA

PATIENT
  Sex: Female

DRUGS (9)
  1. ALPRAZOLAM. [Concomitant]
     Active Substance: ALPRAZOLAM
     Indication: EATING DISORDER
  2. AUSTEDO [Suspect]
     Active Substance: DEUTETRABENAZINE
     Dosage: 24 MILLIGRAM DAILY;
     Route: 065
     Dates: start: 20170907
  3. ALPRAZOLAM. [Concomitant]
     Active Substance: ALPRAZOLAM
     Indication: TREMOR
  4. ALPRAZOLAM. [Concomitant]
     Active Substance: ALPRAZOLAM
     Indication: CHOREA
     Route: 065
     Dates: start: 2015
  5. KEPPRA [Concomitant]
     Active Substance: LEVETIRACETAM
     Indication: SEIZURE
     Dosage: 10 ML DAILY;
     Route: 065
     Dates: start: 201708
  6. AUSTEDO [Suspect]
     Active Substance: DEUTETRABENAZINE
     Indication: HUNTINGTON^S DISEASE
     Dosage: 6 MILLIGRAM DAILY;
     Route: 065
     Dates: start: 20170531, end: 2017
  7. AUSTEDO [Suspect]
     Active Substance: DEUTETRABENAZINE
     Dosage: 36 MILLIGRAM DAILY;
     Route: 065
     Dates: start: 2017, end: 20170906
  8. MIRTAZAPINE. [Concomitant]
     Active Substance: MIRTAZAPINE
     Indication: DEPRESSION
     Dosage: 45 MILLIGRAM DAILY;
     Route: 065
  9. ALPRAZOLAM. [Concomitant]
     Active Substance: ALPRAZOLAM
     Indication: MUSCULOSKELETAL STIFFNESS
     Dosage: .25 MILLIGRAM DAILY;
     Route: 065

REACTIONS (8)
  - Fatigue [Recovering/Resolving]
  - Musculoskeletal stiffness [Not Recovered/Not Resolved]
  - Polydipsia [Not Recovered/Not Resolved]
  - Huntington^s disease [Not Recovered/Not Resolved]
  - Gait disturbance [Not Recovered/Not Resolved]
  - Loss of personal independence in daily activities [Not Recovered/Not Resolved]
  - Condition aggravated [Not Recovered/Not Resolved]
  - Chorea [Not Recovered/Not Resolved]

NARRATIVE: CASE EVENT DATE: 2017
